FAERS Safety Report 20432173 (Version 1)
Quarter: 2022Q1

REPORT INFORMATION
  Report Type: Spontaneous
  Country: US (occurrence: US)
  Receive Date: 20220204
  Receipt Date: 20220204
  Transmission Date: 20220423
  Serious: No
  Sender: FDA-Public Use
  Company Number: US-TEVA-2022-US-1998069

PATIENT
  Age: 42 Year
  Sex: Female

DRUGS (1)
  1. LORAZEPAM [Suspect]
     Active Substance: LORAZEPAM
     Dosage: TWO 1 MG TABLETS DURING THE DAY AND ONE 0.5 MG TABLET AT NIGHT
     Route: 065

REACTIONS (1)
  - Palpitations [Unknown]
